FAERS Safety Report 10409834 (Version 1)
Quarter: 2014Q3

REPORT INFORMATION
  Report Type: Spontaneous
  Country: US (occurrence: None)
  Receive Date: 20140822
  Receipt Date: 20140822
  Transmission Date: 20150326
  Serious: Yes (Hospitalization)
  Sender: FDA-Public Use
  Company Number: 2014COR00060

PATIENT
  Age: 52 Year
  Sex: Female

DRUGS (2)
  1. METAXALONE (METAXALONE) [Suspect]
     Active Substance: METAXALONE
     Route: 048
  2. CITALOPRAM (CITALOPRAM) UNKNOWN [Suspect]
     Active Substance: CITALOPRAM HYDROBROMIDE
     Dosage: TWICE?

REACTIONS (2)
  - Serotonin syndrome [None]
  - Drug interaction [None]
